FAERS Safety Report 7676597-5 (Version None)
Quarter: 2011Q3

REPORT INFORMATION
  Report Type: 
  Country: None (occurrence: None)
  Receive Date: 20110811
  Receipt Date: 20110806
  Transmission Date: 20111222
  Serious: Yes (Other)
  Sender: FDA-Public Use
  Company Number: FR-AMGEN-FRASP2011037785

PATIENT
  Age: 38 Year
  Sex: Female

DRUGS (1)
  1. ENBREL [Suspect]
     Indication: ANKYLOSING SPONDYLITIS
     Dosage: 50 MG, WEEKLY
     Dates: start: 20040401

REACTIONS (7)
  - INJECTION SITE INDURATION [None]
  - BACK PAIN [None]
  - INJECTION SITE ERYTHEMA [None]
  - DRUG EFFECT DECREASED [None]
  - NAUSEA [None]
  - INJECTION SITE PRURITUS [None]
  - MAGNESIUM DEFICIENCY [None]
